FAERS Safety Report 4616884-8 (Version None)
Quarter: 2005Q1

REPORT INFORMATION
  Report Type: 
  Country: None (occurrence: None)
  Receive Date: 20050321
  Receipt Date: 20050307
  Transmission Date: 20050727
  Serious: Yes (Hospitalization)
  Sender: FDA-Public Use
  Company Number: 2005042113

PATIENT
  Age: 61 Year
  Sex: Male
  Weight: 69 kg

DRUGS (9)
  1. TAHOR (ATORVASTATIN) [Suspect]
     Indication: ILL-DEFINED DISORDER
     Dosage: 40 MG, DAILY, ORAL
     Route: 048
     Dates: start: 20040615, end: 20050222
  2. COLCHICINE/OPIUM/TIEMONIUM (COLCHICINE, OPIUM, TIEMONIUM METHYLSULPHAT [Suspect]
     Indication: ILL-DEFINED DISORDER
     Dosage: ORAL
     Route: 048
     Dates: start: 20050201, end: 20050222
  3. VERAPAMIL HCL [Concomitant]
  4. ALLOPURINOL [Concomitant]
  5. BUFLOMEDIL (BUFLOMEDIL) [Concomitant]
  6. LERCANIDIPINE [Concomitant]
  7. AMIODARONE HCL [Concomitant]
  8. FORMETEROL (FORMOTEROL) [Concomitant]
  9. POTASSIUM ACETATE [Concomitant]

REACTIONS (4)
  - FEELING ABNORMAL [None]
  - GENERAL PHYSICAL HEALTH DETERIORATION [None]
  - RENAL FAILURE [None]
  - RHABDOMYOLYSIS [None]
